FAERS Safety Report 6373701-6 (Version None)
Quarter: 2009Q3

REPORT INFORMATION
  Report Type: 
  Country: None (occurrence: None)
  Receive Date: 20090924
  Receipt Date: 20090428
  Transmission Date: 20100115
  Serious: No
  Sender: FDA-Public Use
  Company Number: US-ASTRAZENECA-2009UW10674

PATIENT
  Age: 61 Year
  Sex: Female
  Weight: 58.1 kg

DRUGS (4)
  1. SEROQUEL [Suspect]
     Indication: BIPOLAR DISORDER
     Route: 048
  2. SEROQUEL [Suspect]
     Route: 048
     Dates: end: 20090424
  3. ESTRACE [Concomitant]
  4. ACIPHEX [Concomitant]

REACTIONS (8)
  - AGITATION [None]
  - DRY THROAT [None]
  - IRRITABILITY [None]
  - MEMORY IMPAIRMENT [None]
  - RASH [None]
  - RHINORRHOEA [None]
  - TONGUE DRY [None]
  - VOMITING [None]
